FAERS Safety Report 15305407 (Version 1)
Quarter: 2018Q4

REPORT INFORMATION
  Report Type: Other
  Country: DE (occurrence: DE)
  Receive Date: 20180822
  Receipt Date: 20180822
  Transmission Date: 20190204
  Serious: Yes (Other)
  Sender: FDA-Public Use
  Company Number: DE-MACLEODS PHARMACEUTICALS US LTD-MAC2018016351

PATIENT

DRUGS (12)
  1. RISPERDAL [Suspect]
     Active Substance: RISPERIDONE
     Indication: DELIRIUM
     Dosage: 0.5 MILLIGRAM, QD, UNSPECIFIED
     Route: 048
     Dates: start: 20171021, end: 20171024
  2. L-THYROXINE SODIUM [Concomitant]
     Active Substance: LEVOTHYROXINE SODIUM
     Indication: PRODUCT USED FOR UNKNOWN INDICATION
     Dosage: 75 MICROGRAM, QD, UNSPECIFIED, FOR YEARS
     Route: 048
  3. TAVOR (LORAZEPAM) [Suspect]
     Active Substance: LORAZEPAM
     Indication: PRODUCT USED FOR UNKNOWN INDICATION
     Dosage: UNK, AS NECESSARY, UNSPECIFIED
     Route: 065
     Dates: start: 2017
  4. TAMSULOSIN [Suspect]
     Active Substance: TAMSULOSIN
     Indication: PRODUCT USED FOR UNKNOWN INDICATION
     Dosage: 0.4 MILLIGRAM, QD, UNSPECIFIED, FOR YEARS
     Route: 048
  5. DIPIPERON [Suspect]
     Active Substance: PIPAMPERONE
     Indication: PRODUCT USED FOR UNKNOWN INDICATION
     Dosage: 40 MILLIGRAM, QD, UNSPECIFIED
     Route: 048
     Dates: start: 20171106, end: 20171112
  6. ASPIRIN. [Concomitant]
     Active Substance: ASPIRIN
     Indication: PRODUCT USED FOR UNKNOWN INDICATION
     Dosage: 100 MILLIGRAM, QD, UNSPECIFIED, FOR YEARS
     Route: 048
  7. MEMANTINE. [Suspect]
     Active Substance: MEMANTINE
     Indication: PRODUCT USED FOR UNKNOWN INDICATION
     Dosage: 5 MILLIGRAM, QD, UNSPECIFIED
     Route: 048
     Dates: start: 20171031, end: 20171107
  8. PANTOZOL [Concomitant]
     Active Substance: PANTOPRAZOLE SODIUM
     Indication: PRODUCT USED FOR UNKNOWN INDICATION
     Dosage: 40 MILLIGRAM, QD, UNSPECIFIED, FOR YEARS
     Route: 048
  9. MEMANTINE. [Suspect]
     Active Substance: MEMANTINE
     Dosage: 15 MILLIGRAM, QD, UNSPECIFIED
     Route: 048
     Dates: start: 20171115
  10. RISPERDAL [Suspect]
     Active Substance: RISPERIDONE
     Dosage: 1 MILLIGRAM, QD, UNSPECIFIED
     Route: 048
     Dates: start: 20171025
  11. MEMANTINE. [Suspect]
     Active Substance: MEMANTINE
     Dosage: 10 MILLIGRAM, QD, UNSPECIFIED
     Route: 048
     Dates: start: 20171108, end: 20171114
  12. SEROQUEL [Suspect]
     Active Substance: QUETIAPINE FUMARATE
     Indication: INSOMNIA
     Dosage: UNK, UNSPECIFIED
     Route: 065

REACTIONS (4)
  - Bradyarrhythmia [Not Recovered/Not Resolved]
  - Conduction disorder [Not Recovered/Not Resolved]
  - Off label use [Unknown]
  - Product use in unapproved indication [Unknown]

NARRATIVE: CASE EVENT DATE: 20171021
